FAERS Safety Report 18531794 (Version 1)
Quarter: 2020Q4

REPORT INFORMATION
  Report Type: Spontaneous
  Country: US (occurrence: US)
  Receive Date: 20201123
  Receipt Date: 20201123
  Transmission Date: 20210114
  Serious: No
  Sender: FDA-Public Use
  Company Number: US-CIPLA LTD.-2020US05644

PATIENT

DRUGS (4)
  1. DICLOFENAC [Suspect]
     Active Substance: DICLOFENAC
     Indication: ARTHRITIS
     Dosage: 2 GRAM, TID (3 TIMES A DAY TO JOINTS; ANY OF LOWER EXTREMITIES (FEET))
     Route: 061
     Dates: start: 20200801
  2. DICLOFENAC [Suspect]
     Active Substance: DICLOFENAC
     Indication: JOINT SWELLING
  3. DICLOFENAC [Suspect]
     Active Substance: DICLOFENAC
     Indication: LIMB INJURY
  4. DICLOFENAC [Suspect]
     Active Substance: DICLOFENAC
     Indication: PAIN
     Dosage: 2 GRAM, 3-4 TIMES TO UPPER EXTREMITIES (APPLY TO BOTH KNEES)
     Route: 061
     Dates: start: 20200801

REACTIONS (5)
  - Joint swelling [Not Recovered/Not Resolved]
  - Off label use [Unknown]
  - Product use in unapproved indication [Unknown]
  - Peripheral swelling [Not Recovered/Not Resolved]
  - Condition aggravated [Not Recovered/Not Resolved]

NARRATIVE: CASE EVENT DATE: 20200807
